FAERS Safety Report 10052736 (Version 2)
Quarter: 2014Q2

REPORT INFORMATION
  Report Type: Report from Study
  Country: FR (occurrence: FR)
  Receive Date: 20140402
  Receipt Date: 20140414
  Transmission Date: 20141212
  Serious: Yes (Hospitalization)
  Sender: FDA-Public Use
  Company Number: FR-CELGENEUS-056-21660-14033435

PATIENT
  Age: 73 Year
  Sex: Male

DRUGS (4)
  1. ABRAXANE [Suspect]
     Indication: PANCREATIC CARCINOMA
     Route: 041
     Dates: start: 20140213, end: 20140327
  2. 5-FLUOROURACIL [Suspect]
     Indication: PANCREATIC CARCINOMA
     Route: 040
     Dates: start: 20140213, end: 20140327
  3. 5-FLUOROURACIL [Suspect]
     Route: 041
     Dates: start: 20140213, end: 20140327
  4. FOLINIC ACID [Suspect]
     Indication: PANCREATIC CARCINOMA
     Route: 065
     Dates: start: 20140213, end: 20140327

REACTIONS (2)
  - Renal failure acute [Not Recovered/Not Resolved]
  - Anaemia [Not Recovered/Not Resolved]
